FAERS Safety Report 17251227 (Version 3)
Quarter: 2020Q2

REPORT INFORMATION
  Report Type: Report from Study
  Country: US (occurrence: US)
  Receive Date: 20200109
  Receipt Date: 20200520
  Transmission Date: 20200713
  Serious: No
  Sender: FDA-Public Use
  Company Number: NVSC2020US002957

PATIENT
  Sex: Male

DRUGS (2)
  1. AFINITOR [Suspect]
     Active Substance: EVEROLIMUS
     Indication: TUBEROUS SCLEROSIS COMPLEX
  2. AFINITOR [Suspect]
     Active Substance: EVEROLIMUS
     Indication: MYELOID LEUKAEMIA
     Dosage: 10 MG, QD
     Route: 048
     Dates: start: 20130410

REACTIONS (2)
  - Stomatitis [Not Recovered/Not Resolved]
  - Pharyngeal mass [Not Recovered/Not Resolved]
